FAERS Safety Report 12572544 (Version 2)
Quarter: 2016Q3

REPORT INFORMATION
  Report Type: Report from Study
  Country: PL (occurrence: PL)
  Receive Date: 20160720
  Receipt Date: 20160812
  Transmission Date: 20161109
  Serious: Yes (Hospitalization)
  Sender: FDA-Public Use
  Company Number: PL-BRISTOL-MYERS SQUIBB COMPANY-BMS-2016-057853

PATIENT
  Age: 70 Year
  Sex: Male
  Weight: 79 kg

DRUGS (11)
  1. NIVOLUMAB [Suspect]
     Active Substance: NIVOLUMAB
     Dosage: 237 MG, UNK
     Route: 065
     Dates: start: 20160317, end: 20160317
  2. NIVOLUMAB [Suspect]
     Active Substance: NIVOLUMAB
     Dosage: 246 MG, UNK
     Route: 065
     Dates: start: 20160527, end: 20160527
  3. NIVOLUMAB [Suspect]
     Active Substance: NIVOLUMAB
     Dosage: 240 MG, UNK
     Route: 065
     Dates: start: 20160331, end: 20160331
  4. NIVOLUMAB [Suspect]
     Active Substance: NIVOLUMAB
     Dosage: 240 MG, UNK
     Route: 065
     Dates: start: 20160428, end: 20160428
  5. NIVOLUMAB [Suspect]
     Active Substance: NIVOLUMAB
     Dosage: 243 MG, UNK
     Route: 065
     Dates: start: 20160512, end: 20160512
  6. NIVOLUMAB [Suspect]
     Active Substance: NIVOLUMAB
     Dosage: 234 MG, UNK
     Route: 065
     Dates: start: 20160204, end: 20160204
  7. NIVOLUMAB [Suspect]
     Active Substance: NIVOLUMAB
     Dosage: 240 MG, UNK
     Route: 065
     Dates: start: 20160414, end: 20160414
  8. NIVOLUMAB [Suspect]
     Active Substance: NIVOLUMAB
     Indication: NON-SMALL CELL LUNG CANCER
     Dosage: 234 MG, UNK
     Route: 065
     Dates: start: 20160121, end: 20160121
  9. NIVOLUMAB [Suspect]
     Active Substance: NIVOLUMAB
     Dosage: 246 MG, UNK
     Route: 065
     Dates: start: 20160610, end: 20160610
  10. NIVOLUMAB [Suspect]
     Active Substance: NIVOLUMAB
     Dosage: 234 MG, UNK
     Route: 065
     Dates: start: 20160303, end: 20160303
  11. NIVOLUMAB [Suspect]
     Active Substance: NIVOLUMAB
     Dosage: 234 MG, UNK
     Route: 065
     Dates: start: 20160218, end: 20160218

REACTIONS (1)
  - Pyrexia [Recovering/Resolving]

NARRATIVE: CASE EVENT DATE: 20160708
